FAERS Safety Report 5751054-1 (Version None)
Quarter: 2008Q2

REPORT INFORMATION
  Report Type: 
  Country: None (occurrence: None)
  Receive Date: 20080528
  Receipt Date: 20080523
  Transmission Date: 20081010
  Serious: Yes (Hospitalization)
  Sender: FDA-Public Use
  Company Number: US-JNJFOC-20080505345

PATIENT
  Age: 20 Year
  Sex: Male
  Weight: 90.72 kg

DRUGS (6)
  1. PALIPERIDONE [Suspect]
     Indication: SCHIZOPHRENIA
  2. RISPERDAL [Concomitant]
     Indication: PSYCHOTIC DISORDER
  3. ABILIFY [Concomitant]
     Indication: PSYCHOTIC DISORDER
  4. WELLBUTRIN SR [Concomitant]
     Indication: MOOD SWINGS
  5. CLONAZEPAM [Concomitant]
  6. QUETIAPINE FUMARATE [Concomitant]
     Indication: SLEEP DISORDER THERAPY

REACTIONS (2)
  - HOMICIDAL IDEATION [None]
  - SUICIDAL IDEATION [None]
